FAERS Safety Report 9604112 (Version 1)
Quarter: 2013Q4

REPORT INFORMATION
  Report Type: Spontaneous
  Country: FR (occurrence: FR)
  Receive Date: 20131008
  Receipt Date: 20131008
  Transmission Date: 20140711
  Serious: Yes (Other)
  Sender: FDA-Public Use
  Company Number: FR-AMGEN-FRASP2013070101

PATIENT
  Age: 48 Year
  Sex: Female

DRUGS (2)
  1. VECTIBIX [Suspect]
     Indication: ADENOCARCINOMA
     Dosage: UNK UNK, Q2WK
     Route: 042
     Dates: start: 20130808
  2. FOLFIRI [Concomitant]
     Indication: ADENOCARCINOMA
     Dosage: UNK

REACTIONS (4)
  - Mouth ulceration [Not Recovered/Not Resolved]
  - Genital ulceration [Not Recovered/Not Resolved]
  - Acne [Not Recovered/Not Resolved]
  - Pruritus [Not Recovered/Not Resolved]
